FAERS Safety Report 5847388-2 (Version None)
Quarter: 2008Q3

REPORT INFORMATION
  Report Type: 
  Country: None (occurrence: None)
  Receive Date: 20080815
  Receipt Date: 20080813
  Transmission Date: 20090109
  Serious: Yes (Death, Hospitalization)
  Sender: FDA-Public Use
  Company Number: FR-WYE-G01999808

PATIENT
  Sex: Male

DRUGS (4)
  1. TORISEL [Suspect]
     Indication: RENAL CANCER METASTATIC
     Route: 042
     Dates: start: 20080502, end: 20080808
  2. LIPANTHYL [Concomitant]
     Indication: HYPERCHOLESTEROLAEMIA
     Dosage: 160 MG (FREQUENCY UNKNOWN)
     Route: 048
     Dates: start: 20080725
  3. ZOMETA [Concomitant]
     Indication: METASTASES TO BONE
     Dosage: 4 MG (FREQUENCY UNKNOWN)
     Route: 042
     Dates: start: 20080725
  4. AVASTIN [Suspect]
     Indication: RENAL CANCER METASTATIC
     Route: 042
     Dates: start: 20080502, end: 20080808

REACTIONS (1)
  - RESPIRATORY FAILURE [None]
